FAERS Safety Report 17455214 (Version 4)
Quarter: 2020Q2

REPORT INFORMATION
  Report Type: Spontaneous
  Country: GB (occurrence: GB)
  Receive Date: 20200225
  Receipt Date: 20200501
  Transmission Date: 20200713
  Serious: Yes (Death, Other)
  Sender: FDA-Public Use
  Company Number: GB-TEVA-2020-GB-1191490

PATIENT
  Age: 48 Year
  Sex: Female
  Weight: 66 kg

DRUGS (24)
  1. AMOXICILLIN. [Concomitant]
     Active Substance: AMOXICILLIN
     Dates: start: 20171005, end: 20171005
  2. THIAMINE. [Concomitant]
     Active Substance: THIAMINE
     Dates: start: 20161201, end: 20171017
  3. HUMAN ACTRAPID [Concomitant]
     Active Substance: INSULIN HUMAN
     Indication: DIABETES MELLITUS
     Dates: start: 20171009, end: 20171009
  4. PABRINEX [Concomitant]
     Active Substance: ASCORBIC ACID\VITAMIN B COMPLEX
     Dates: start: 20171005, end: 20171008
  5. SPIRONOLACTONE. [Concomitant]
     Active Substance: SPIRONOLACTONE
     Dates: start: 20161201, end: 20171005
  6. CREON [Concomitant]
     Active Substance: PANCRELIPASE AMYLASE\PANCRELIPASE LIPASE\PANCRELIPASE PROTEASE
     Dates: start: 20161201, end: 20171015
  7. ADCAL-D3 [Concomitant]
     Active Substance: CALCIUM CARBONATE\CHOLECALCIFEROL
     Indication: OSTEOPOROSIS
     Dates: start: 20160201, end: 20171015
  8. VITAMIN B COMPOUND STRONG [Concomitant]
     Active Substance: NIACINAMIDE\PYRIDOXINE HYDROCHLORIDE\RIBOFLAVIN\THIAMINE HYDROCHLORIDE
     Indication: ALCOHOLISM
     Dates: start: 20161201, end: 20171015
  9. CARVEDILOL. [Concomitant]
     Active Substance: CARVEDILOL
     Dates: start: 20161212, end: 20171015
  10. VITAMIN B COMPOUND [Concomitant]
  11. NOVORAPID [Concomitant]
     Active Substance: INSULIN ASPART
     Indication: DIABETES MELLITUS
     Dates: start: 20171010, end: 20171010
  12. SPIRIVA [Concomitant]
     Active Substance: TIOTROPIUM BROMIDE MONOHYDRATE
  13. LANTUS [Concomitant]
     Active Substance: INSULIN GLARGINE
     Indication: DIABETES MELLITUS
     Dates: start: 20161201, end: 20171015
  14. CO-AMOXICLAV [Concomitant]
     Active Substance: AMOXICILLIN\CLAVULANATE POTASSIUM
     Dates: start: 20171006, end: 20171006
  15. MEROPENEM. [Concomitant]
     Active Substance: MEROPENEM
     Dates: start: 20171006, end: 20171008
  16. FOLIC ACID. [Concomitant]
     Active Substance: FOLIC ACID
     Indication: FOLATE DEFICIENCY
     Dates: start: 20161201, end: 20171015
  17. LANSOPRAZOLE. [Concomitant]
     Active Substance: LANSOPRAZOLE
     Dates: start: 20161201, end: 20171015
  18. SALBUTAMOL [Concomitant]
     Active Substance: ALBUTEROL
     Dosage: 1-2 PUFFS WHEN REQUIRED UP TO BD
     Route: 055
  19. COCODAMOL [Concomitant]
     Active Substance: ACETAMINOPHEN\CODEINE PHOSPHATE
     Indication: PAIN
     Dates: start: 20161201, end: 20171005
  20. LACTULOSE. [Concomitant]
     Active Substance: LACTULOSE
     Dates: start: 20161201, end: 20171015
  21. FLUCONAZOLE. [Suspect]
     Active Substance: FLUCONAZOLE
     Indication: ENCEPHALITIS FUNGAL
     Route: 042
     Dates: start: 20171006, end: 20171008
  22. CODEINE [Concomitant]
     Active Substance: CODEINE
     Indication: PAIN
     Dates: start: 20171007, end: 20171007
  23. SERETIDE [Concomitant]
     Active Substance: FLUTICASONE PROPIONATE\SALMETEROL XINAFOATE
     Indication: CHRONIC OBSTRUCTIVE PULMONARY DISEASE
     Dates: start: 20161201, end: 20171015
  24. GENTAMICIN. [Concomitant]
     Active Substance: GENTAMICIN
     Dates: start: 20171005, end: 20171005

REACTIONS (11)
  - Electrocardiogram QT prolonged [Fatal]
  - Toxicity to various agents [Fatal]
  - Electrocardiogram T wave inversion [Fatal]
  - Urinary incontinence [Fatal]
  - Hepatic encephalopathy [Fatal]
  - Acute kidney injury [Fatal]
  - Unresponsive to stimuli [Fatal]
  - Lethargy [Fatal]
  - Confusional state [Fatal]
  - Feeling of body temperature change [Fatal]
  - Arrhythmia [Fatal]

NARRATIVE: CASE EVENT DATE: 20171014
